FAERS Safety Report 8581773-3 (Version None)
Quarter: 2012Q3

REPORT INFORMATION
  Report Type: 
  Country: None (occurrence: None)
  Receive Date: 20120809
  Receipt Date: 20120731
  Transmission Date: 20120928
  Serious: Yes (Other)
  Sender: FDA-Public Use
  Company Number: PHHY2012AU066716

PATIENT
  Age: 64 Year
  Sex: Female

DRUGS (1)
  1. ONBREZ [Suspect]
     Indication: CHRONIC OBSTRUCTIVE PULMONARY DISEASE

REACTIONS (4)
  - SWOLLEN TONGUE [None]
  - PARAESTHESIA ORAL [None]
  - TONGUE DISORDER [None]
  - LIP SWELLING [None]
